FAERS Safety Report 15530805 (Version 2)
Quarter: 2019Q1

REPORT INFORMATION
  Report Type: Spontaneous
  Country: US (occurrence: US)
  Receive Date: 20181018
  Receipt Date: 20190129
  Transmission Date: 20190417
  Serious: Yes (Other)
  Sender: FDA-Public Use
  Company Number: US-PRINSTON PHARMACEUTICAL INC.-2018PRN01502

PATIENT
  Age: 59 Year
  Sex: Female
  Weight: 56.69 kg

DRUGS (6)
  1. TAMOXIFEN [Suspect]
     Active Substance: TAMOXIFEN
     Dosage: UNK
  2. CALCIUM SUPPLIMENT [Concomitant]
  3. CENTRUM SILVER MULTIVITAMIN [Concomitant]
  4. VALSARTAN. [Suspect]
     Active Substance: VALSARTAN
     Indication: BLOOD PRESSURE ABNORMAL
     Dosage: 80 MG, 1X/DAY
     Route: 048
     Dates: start: 2014, end: 2018
  5. B3 VITAMIN [Concomitant]
  6. B COMPLEX VITAMIN [Concomitant]

REACTIONS (5)
  - Bone density decreased [Unknown]
  - Ligament disorder [Unknown]
  - Arthralgia [Not Recovered/Not Resolved]
  - Breast cancer [Unknown]
  - Endometrial hyperplasia [Recovered/Resolved]

NARRATIVE: CASE EVENT DATE: 201512
